FAERS Safety Report 8688045 (Version 4)
Quarter: 2013Q3

REPORT INFORMATION
  Report Type: Report from Study
  Country: CA (occurrence: CA)
  Receive Date: 20120727
  Receipt Date: 20130709
  Transmission Date: 20140515
  Serious: Yes (Hospitalization, Other)
  Sender: FDA-Public Use
  Company Number: CA-ROCHE-1090595

PATIENT
  Age: 84 Year
  Sex: Female
  Weight: 56 kg

DRUGS (1)
  1. ACTEMRA [Suspect]
     Indication: RHEUMATOID ARTHRITIS
     Route: 042
     Dates: start: 20110715, end: 20130118

REACTIONS (6)
  - Pelvic fracture [Recovering/Resolving]
  - Fall [Recovered/Resolved]
  - Urosepsis [Unknown]
  - Immunodeficiency [Unknown]
  - Urinary tract infection [Unknown]
  - Infection [Unknown]
